FAERS Safety Report 17247735 (Version 4)
Quarter: 2020Q1

REPORT INFORMATION
  Report Type: Report from Study
  Country: US (occurrence: US)
  Receive Date: 20200108
  Receipt Date: 20200220
  Transmission Date: 20200409
  Serious: Yes (Hospitalization, Other)
  Sender: FDA-Public Use
  Company Number: US-GILEAD-2020-0445572

PATIENT
  Age: 65 Year
  Sex: Female

DRUGS (4)
  1. VELETRI [Concomitant]
     Active Substance: EPOPROSTENOL
  2. COUMADIN [Concomitant]
     Active Substance: WARFARIN SODIUM
  3. ADCIRCA [Concomitant]
     Active Substance: TADALAFIL
  4. AMBRISENTAN [Suspect]
     Active Substance: AMBRISENTAN
     Indication: PRODUCT USED FOR UNKNOWN INDICATION
     Dosage: 5 MG, QD
     Route: 048
     Dates: start: 20170126

REACTIONS (11)
  - Fall [Recovered/Resolved]
  - Lower limb fracture [Unknown]
  - Respiratory failure [Unknown]
  - Pain in jaw [Not Recovered/Not Resolved]
  - Pneumonia [Unknown]
  - Accident [Unknown]
  - Ankle fracture [Unknown]
  - Wrist fracture [Unknown]
  - Rash [Not Recovered/Not Resolved]
  - Upper limb fracture [Unknown]
  - Dyspnoea [Not Recovered/Not Resolved]

NARRATIVE: CASE EVENT DATE: 20191219
